FAERS Safety Report 8293443-X (Version None)
Quarter: 2012Q2

REPORT INFORMATION
  Report Type: 
  Country: None (occurrence: None)
  Receive Date: 20120417
  Receipt Date: 20120411
  Transmission Date: 20120825
  Serious: Yes (Hospitalization, Disabling, Other)
  Sender: FDA-Public Use
  Company Number: US-MERCK-1203USA02988

PATIENT
  Age: 28 Year
  Sex: Male
  Weight: 126 kg

DRUGS (3)
  1. PREDNISONE [Concomitant]
     Dosage: VARIED FROM 5 MG TO 20 MG TABLETS
     Route: 048
     Dates: start: 20060901, end: 20070401
  2. PREDNISONE [Concomitant]
     Indication: MYASTHENIA GRAVIS
     Dosage: 15 TABS FOR 30 DAY SUPPLY
     Route: 048
     Dates: start: 20060601, end: 20061001
  3. FOSAMAX [Suspect]
     Indication: OSTEOPOROSIS
     Route: 048
     Dates: start: 20020101, end: 20110101

REACTIONS (17)
  - DEPRESSION [None]
  - HYPERGLYCAEMIA [None]
  - SPINAL FRACTURE [None]
  - CATARACT [None]
  - FEMUR FRACTURE [None]
  - OTITIS EXTERNA [None]
  - LOW TURNOVER OSTEOPATHY [None]
  - EYELID PTOSIS [None]
  - HYPERTENSION [None]
  - EYE DISORDER [None]
  - TINEA VERSICOLOUR [None]
  - TACHYCARDIA [None]
  - ADVERSE EVENT [None]
  - GASTROOESOPHAGEAL REFLUX DISEASE [None]
  - OTITIS MEDIA ACUTE [None]
  - FALL [None]
  - PILONIDAL CYST [None]
